FAERS Safety Report 8142913-3 (Version None)
Quarter: 2012Q1

REPORT INFORMATION
  Report Type: 
  Country: None (occurrence: None)
  Receive Date: 20120217
  Receipt Date: 20120210
  Transmission Date: 20120608
  Serious: Yes (Hospitalization)
  Sender: FDA-Public Use
  Company Number: US-BIOGENIDEC-2012BI003108

PATIENT
  Age: 47 Year
  Sex: Female

DRUGS (1)
  1. AVONEX [Suspect]
     Indication: MULTIPLE SCLEROSIS
     Route: 030
     Dates: start: 19980101

REACTIONS (9)
  - RENAL IMPAIRMENT [None]
  - MEMORY IMPAIRMENT [None]
  - CARDIAC DISORDER [None]
  - GAIT DISTURBANCE [None]
  - FALL [None]
  - HEART RATE ABNORMAL [None]
  - FEELING ABNORMAL [None]
  - HEART RATE DECREASED [None]
  - UTERINE CYST [None]
